FAERS Safety Report 25107279 (Version 2)
Quarter: 2025Q2

REPORT INFORMATION
  Report Type: Spontaneous
  Country: US (occurrence: US)
  Receive Date: 20250321
  Receipt Date: 20250520
  Transmission Date: 20250717
  Serious: No
  Sender: ABBVIE
  Company Number: US-ABBVIE-6189537

PATIENT
  Age: 75 Year
  Sex: Female
  Weight: 43.544 kg

DRUGS (2)
  1. CREON [Suspect]
     Active Substance: PANCRELIPASE AMYLASE\PANCRELIPASE LIPASE\PANCRELIPASE PROTEASE
     Indication: Lung carcinoma cell type unspecified stage IV
     Route: 048
     Dates: start: 202409
  2. CREON [Suspect]
     Active Substance: PANCRELIPASE AMYLASE\PANCRELIPASE LIPASE\PANCRELIPASE PROTEASE
     Indication: Lung carcinoma cell type unspecified stage IV
     Route: 048
     Dates: start: 202404, end: 202409

REACTIONS (1)
  - Weight decreased [Recovering/Resolving]

NARRATIVE: CASE EVENT DATE: 20240401
